FAERS Safety Report 4839850-6 (Version None)
Quarter: 2005Q4

REPORT INFORMATION
  Report Type: 
  Country: None (occurrence: None)
  Receive Date: 20051129
  Receipt Date: 20051115
  Transmission Date: 20060501
  Serious: Yes (Other)
  Sender: FDA-Public Use
  Company Number: PHBS2005JP16806

PATIENT
  Age: 52 Year
  Sex: Male

DRUGS (10)
  1. LATANOPROST [Suspect]
     Indication: INTRAOCULAR PRESSURE INCREASED
     Dates: start: 20010414
  2. BETAMETHASONE SODIUM PHOSPHATE [Concomitant]
     Dates: start: 20010201
  3. BETAMETHASONE SODIUM PHOSPHATE [Concomitant]
     Dates: start: 20010512
  4. BETAMETHASONE SODIUM PHOSPHATE [Concomitant]
     Dates: start: 20010615
  5. OFLOXACIN [Concomitant]
     Dates: start: 20010201
  6. DORZOLAMIDE HYDROCHLORIDE [Concomitant]
     Indication: INTRAOCULAR PRESSURE INCREASED
     Dates: start: 20010428
  7. METHYLPREDNISOLONE [Concomitant]
     Route: 048
     Dates: start: 20010512, end: 20010522
  8. ACETAZOLAMIDE [Concomitant]
     Dosage: 250 MG/DAY
     Route: 048
  9. ACETAZOLAMIDE [Concomitant]
     Dosage: 750 MG/DAY
     Route: 048
  10. MIKELAN (NVO) [Suspect]
     Indication: INTRAOCULAR PRESSURE INCREASED
     Dates: start: 20010414

REACTIONS (7)
  - ASTIGMATISM [None]
  - CORNEAL DEPOSITS [None]
  - CORNEAL GRAFT REJECTION [None]
  - DRUG INEFFECTIVE [None]
  - KERATITIS HERPETIC [None]
  - UVEITIS [None]
  - VISUAL ACUITY REDUCED [None]
